FAERS Safety Report 14239284 (Version 1)
Quarter: 2017Q4

REPORT INFORMATION
  Report Type: Spontaneous
  Country: US (occurrence: US)
  Receive Date: 20171130
  Receipt Date: 20171130
  Transmission Date: 20180321
  Serious: No
  Sender: FDA-Public Use
  Company Number: US-SA-2017SA225304

PATIENT
  Age: 64 Year
  Sex: Male

DRUGS (1)
  1. KEVZARA [Suspect]
     Active Substance: SARILUMAB
     Indication: PRODUCT USED FOR UNKNOWN INDICATION
     Route: 058
     Dates: start: 20170822

REACTIONS (3)
  - Epistaxis [Unknown]
  - Rhinorrhoea [Unknown]
  - Increased viscosity of upper respiratory secretion [Unknown]

NARRATIVE: CASE EVENT DATE: 20171106
